FAERS Safety Report 6913485-3 (Version None)
Quarter: 2010Q3

REPORT INFORMATION
  Report Type: 
  Country: None (occurrence: None)
  Receive Date: 20100805
  Receipt Date: 20100805
  Transmission Date: 20110219
  Serious: Yes (Life-Threatening, Hospitalization)
  Sender: FDA-Public Use
  Company Number: None

PATIENT
  Age: 79 Year
  Sex: Female
  Weight: 82.6 kg

DRUGS (2)
  1. ALEVE (CAPLET) [Suspect]
     Indication: ABDOMINAL PAIN
     Dosage: 220MG TWICE DAILY PO
     Route: 048
     Dates: start: 20080101, end: 20100801
  2. ASPIRIN [Suspect]
     Indication: CORONARY ARTERY DISEASE
     Dosage: 81MG DAILY PO
     Route: 048
     Dates: start: 19980601, end: 20100801

REACTIONS (2)
  - ANAEMIA [None]
  - GASTRIC ULCER [None]
